FAERS Safety Report 9419587 (Version 4)
Quarter: 2013Q4

REPORT INFORMATION
  Report Type: Spontaneous
  Country: DE (occurrence: DE)
  Receive Date: 20130725
  Receipt Date: 20131112
  Transmission Date: 20140711
  Serious: Yes (Other)
  Sender: FDA-Public Use
  Company Number: DE-PFIZER INC-2013211628

PATIENT
  Age: 56 Year
  Sex: Male

DRUGS (4)
  1. XALATAN [Suspect]
     Dosage: UNK, 1X/DAY AT NIGHT
  2. AZARGA [Suspect]
     Indication: MACULAR DEGENERATION
     Dosage: 1 GTT, 2X/DAY, BOTH EYES
     Route: 047
     Dates: start: 20130203, end: 201307
  3. AZARGA [Suspect]
     Indication: OPEN ANGLE GLAUCOMA
     Dosage: TWICE DAILY
     Dates: start: 201308, end: 201308
  4. LUTEIN [Concomitant]
     Dosage: 1 DF, 1X/DAY

REACTIONS (13)
  - Retinal haemorrhage [Not Recovered/Not Resolved]
  - Macular cyst [Unknown]
  - Visual field defect [Not Recovered/Not Resolved]
  - Angina pectoris [Recovered/Resolved]
  - Headache [Recovered/Resolved]
  - Cough [Recovered/Resolved]
  - Dyspnoea [Recovered/Resolved]
  - Oropharyngeal pain [Not Recovered/Not Resolved]
  - Palpitations [Not Recovered/Not Resolved]
  - Depression [Not Recovered/Not Resolved]
  - Libido decreased [Not Recovered/Not Resolved]
  - Fatigue [Recovered/Resolved]
  - Amnesia [Unknown]
